FAERS Safety Report 25652585 (Version 1)
Quarter: 2025Q3

REPORT INFORMATION
  Report Type: Spontaneous
  Country: GB (occurrence: GB)
  Receive Date: 20250807
  Receipt Date: 20250807
  Transmission Date: 20251020
  Serious: Yes (Disabling)
  Sender: HETERO
  Company Number: None

PATIENT
  Sex: Female

DRUGS (2)
  1. EPLERENONE [Suspect]
     Active Substance: EPLERENONE
     Indication: Gitelman^s syndrome
     Route: 065
  2. INSPRA [Suspect]
     Active Substance: EPLERENONE
     Indication: Gitelman^s syndrome
     Route: 065

REACTIONS (4)
  - Peripheral swelling [Recovering/Resolving]
  - Abdominal distension [Recovering/Resolving]
  - Cough [Recovered/Resolved]
  - Off label use [Unknown]
